FAERS Safety Report 13288623 (Version 2)
Quarter: 2017Q1

REPORT INFORMATION
  Report Type: Spontaneous
  Country: US (occurrence: US)
  Receive Date: 20170302
  Receipt Date: 20170328
  Transmission Date: 20170428
  Serious: No
  Sender: FDA-Public Use
  Company Number: US-PFIZER INC-2017081969

PATIENT
  Age: 81 Year
  Sex: Female
  Weight: 63.5 kg

DRUGS (8)
  1. XALATAN [Suspect]
     Active Substance: LATANOPROST
     Indication: CATARACT
     Dosage: 2 GTT, 1X/DAY (1 DROP TO BOTH EYES AT BEDTIME AS DIRECTED)
     Route: 047
  2. POT CL MICRO [Concomitant]
     Dosage: 1 DF, 1X/DAY(DAILY) (BEEN TAKING ABOUT 6 MONTHS.)
     Route: 048
  3. POT CL MICRO [Concomitant]
     Dosage: 20 MEQ, UNK
     Dates: start: 2014
  4. XALATAN [Suspect]
     Active Substance: LATANOPROST
     Indication: GLAUCOMA
     Dosage: 1X/DAY
     Dates: start: 2010
  5. AMLODIPINE [Concomitant]
     Active Substance: AMLODIPINE BESYLATE
     Indication: HYPERTENSION
     Dosage: 1 DF, DAILY(1 TAB) (BEEN TAKING ABOUT 10 YEARS. DOES NOT KNOW THE DOSAGE.)
     Route: 048
     Dates: start: 2010
  6. XALATAN [Suspect]
     Active Substance: LATANOPROST
     Dosage: UNK
  7. PRAVASTATIN. [Concomitant]
     Active Substance: PRAVASTATIN
     Indication: BLOOD CHOLESTEROL
     Dosage: 40 MG, 1X/DAY(AT NIGHT) (BEEN TAKING ABOUT 3 YEARS)
     Route: 048
     Dates: start: 2011
  8. GABAPENTIN. [Concomitant]
     Active Substance: GABAPENTIN
     Indication: NEUROPATHY PERIPHERAL
     Dosage: UNK UNK, 3X/DAY (BEEN TAKING ABOUT 4 YEARS. DOES NOT KNOW THE DOSAGE)
     Route: 048

REACTIONS (4)
  - Skin abrasion [Recovered/Resolved]
  - Accidental exposure to product [Recovered/Resolved]
  - Fall [Recovered/Resolved]
  - Drug dose omission [Recovered/Resolved]

NARRATIVE: CASE EVENT DATE: 2010
